FAERS Safety Report 15427272 (Version 1)
Quarter: 2018Q3

REPORT INFORMATION
  Report Type: Spontaneous
  Country: US (occurrence: US)
  Receive Date: 20180925
  Receipt Date: 20180925
  Transmission Date: 20181010
  Serious: No
  Sender: FDA-Public Use
  Company Number: US-GILEAD-2018-0364147

PATIENT
  Age: 56 Year
  Sex: Male

DRUGS (2)
  1. GENVOYA [Concomitant]
     Active Substance: COBICISTAT\ELVITEGRAVIR\EMTRICITABINE\TENOFOVIR ALAFENAMIDE FUMARATE
     Dosage: UNK
     Route: 065
  2. BIKTARVY [Suspect]
     Active Substance: BICTEGRAVIR SODIUM\EMTRICITABINE\TENOFOVIR ALAFENAMIDE FUMARATE
     Indication: PRODUCT USED FOR UNKNOWN INDICATION
     Route: 065

REACTIONS (8)
  - Influenza [Recovered/Resolved]
  - Pain [Recovered/Resolved]
  - Arthralgia [Not Recovered/Not Resolved]
  - Blood urine present [Recovered/Resolved]
  - Abnormal dreams [Recovered/Resolved]
  - Plantar fasciitis [Not Recovered/Not Resolved]
  - Gait disturbance [Unknown]
  - Poor quality sleep [Recovered/Resolved]

NARRATIVE: CASE EVENT DATE: 201807
